FAERS Safety Report 22640324 (Version 1)
Quarter: 2023Q2

REPORT INFORMATION
  Report Type: Spontaneous
  Country: FR (occurrence: FR)
  Receive Date: 20230626
  Receipt Date: 20230626
  Transmission Date: 20230722
  Serious: Yes (Hospitalization)
  Sender: FDA-Public Use
  Company Number: None

PATIENT
  Age: 82 Year
  Sex: Male

DRUGS (4)
  1. VOGALENE [Suspect]
     Active Substance: METOPIMAZINE
     Indication: Vomiting
     Route: 065
     Dates: start: 20230415, end: 20230424
  2. AMOXICILLIN [Suspect]
     Active Substance: AMOXICILLIN
     Indication: Osteomyelitis
     Dosage: 6 GRAM DAILY; 6G/DAY
     Route: 065
     Dates: start: 20230324, end: 20230425
  3. OFLOXACIN [Suspect]
     Active Substance: OFLOXACIN
     Indication: Osteomyelitis
     Dosage: 400 MILLIGRAM DAILY; 400MG/DAY
     Route: 065
     Dates: start: 20230319, end: 20230424
  4. RIFAMPIN [Suspect]
     Active Substance: RIFAMPIN
     Indication: Osteomyelitis
     Dosage: 900 MILLIGRAM DAILY; 900MG/DAY
     Route: 065
     Dates: start: 20230319, end: 20230424

REACTIONS (1)
  - Cutaneous vasculitis [Recovered/Resolved]

NARRATIVE: CASE EVENT DATE: 20230422
